FAERS Safety Report 5205700-1 (Version None)
Quarter: 2007Q1

REPORT INFORMATION
  Report Type: 
  Country: None (occurrence: None)
  Receive Date: 20070105
  Receipt Date: 20070105
  Transmission Date: 20070707
  Serious: No
  Sender: FDA-Public Use
  Company Number: None

PATIENT
  Sex: Male
  Weight: 80.7403 kg

DRUGS (2)
  1. PRAVASTATIN [Suspect]
     Indication: CORONARY ARTERY DISEASE
     Dosage: 40MG NIGHTLY, AT BEDTIME PO
     Route: 048
     Dates: start: 20060701, end: 20061201
  2. PRAVASTATIN [Suspect]
     Indication: DYSLIPIDAEMIA
     Dosage: 40MG NIGHTLY, AT BEDTIME PO
     Route: 048
     Dates: start: 20060701, end: 20061201

REACTIONS (2)
  - MYALGIA [None]
  - PHARMACEUTICAL PRODUCT COMPLAINT [None]
